FAERS Safety Report 5620315-9 (Version None)
Quarter: 2008Q1

REPORT INFORMATION
  Report Type: 
  Country: None (occurrence: None)
  Receive Date: 20080208
  Receipt Date: 20080131
  Transmission Date: 20080703
  Serious: Yes (Hospitalization, Other)
  Sender: FDA-Public Use
  Company Number: US-PURDUE-USA_2008_0031244

PATIENT
  Age: 22 Year
  Sex: Male

DRUGS (2)
  1. OXYCONTIN [Suspect]
     Indication: DRUG ABUSE
     Dosage: UNK MG, UNK
     Route: 048
  2. COCAINE [Suspect]
     Indication: DRUG ABUSE
     Dosage: UNK, UNK

REACTIONS (14)
  - ABNORMAL BEHAVIOUR [None]
  - AGGRESSION [None]
  - COMA [None]
  - CONTUSION [None]
  - DRUG TOXICITY [None]
  - ELECTRIC SHOCK [None]
  - EYE SWELLING [None]
  - FEAR [None]
  - INJURY [None]
  - MYOCARDIAL INFARCTION [None]
  - RENAL FAILURE [None]
  - SKIN LACERATION [None]
  - SUBSTANCE ABUSE [None]
  - SWELLING FACE [None]
